FAERS Safety Report 25189661 (Version 1)
Quarter: 2025Q2

REPORT INFORMATION
  Report Type: Report from Study
  Country: US (occurrence: US)
  Receive Date: 20250411
  Receipt Date: 20250411
  Transmission Date: 20250717
  Serious: No
  Sender: DECIPHERA PHARMACEUTICALS
  Company Number: US-DECIPHERA PHARMACEUTICALS LLC-2025US000305

PATIENT
  Age: 61 Year
  Sex: Male

DRUGS (2)
  1. QINLOCK [Suspect]
     Active Substance: RIPRETINIB
     Indication: Product used for unknown indication
  2. QINLOCK [Suspect]
     Active Substance: RIPRETINIB

REACTIONS (2)
  - Toxicity to various agents [Unknown]
  - Incorrect dosage administered [Unknown]
